FAERS Safety Report 12387989 (Version 1)
Quarter: 2016Q2

REPORT INFORMATION
  Report Type: Spontaneous
  Country: US (occurrence: None)
  Receive Date: 20160519
  Receipt Date: 20160519
  Transmission Date: 20160815
  Serious: No
  Sender: FDA-Public Use
  Company Number: None

PATIENT
  Age: 54 Year
  Sex: Male

DRUGS (14)
  1. LORTAB [Concomitant]
     Active Substance: ACETAMINOPHEN\HYDROCODONE BITARTRATE
  2. NORVASC [Concomitant]
     Active Substance: AMLODIPINE BESYLATE
  3. CEFTIN [Concomitant]
     Active Substance: CEFUROXIME AXETIL
  4. ENBREL [Suspect]
     Active Substance: ETANERCEPT
     Indication: PSORIASIS
     Route: 058
     Dates: start: 20150814
  5. LIPITOR [Concomitant]
     Active Substance: ATORVASTATIN CALCIUM
  6. PROTONIX [Concomitant]
     Active Substance: PANTOPRAZOLE SODIUM
  7. PLAVIX [Concomitant]
     Active Substance: CLOPIDOGREL BISULFATE
  8. AUG BETAMET [Concomitant]
  9. CADUET [Concomitant]
     Active Substance: AMLODIPINE BESYLATE\ATORVASTATIN CALCIUM
  10. XYZAL [Concomitant]
     Active Substance: LEVOCETIRIZINE DIHYDROCHLORIDE
  11. PANTOPRAZOLE [Concomitant]
     Active Substance: PANTOPRAZOLE SODIUM
  12. CARISOPRODOL. [Concomitant]
     Active Substance: CARISOPRODOL
  13. COREG [Concomitant]
     Active Substance: CARVEDILOL
  14. ENBREL [Concomitant]
     Active Substance: ETANERCEPT

REACTIONS (2)
  - Psoriasis [None]
  - Ear infection [None]

NARRATIVE: CASE EVENT DATE: 20160518
